FAERS Safety Report 10380962 (Version 1)
Quarter: 2014Q1

REPORT INFORMATION
  Report Type: Spontaneous
  Country: US (occurrence: None)
  Receive Date: 20140306
  Receipt Date: 20140306
  Transmission Date: 20141002
  Serious: Yes (Hospitalization)
  Sender: FDA-Public Use
  Company Number: 163-21880-13020420

PATIENT
  Age: 55 Year
  Sex: Female
  Weight: 45.81 kg

DRUGS (8)
  1. REVLIMID (LENALIDOMIDE) (10 MILLIGRAM, CAPSULES) [Suspect]
     Indication: PLASMA CELL MYELOMA
     Route: 048
     Dates: start: 20110310, end: 20120328
  2. ACYCLOVIR (ACICLOVIR) (ACICLOVIR) [Concomitant]
  3. DEXAMETHASONE [Concomitant]
  4. METHADONE HCL (METHADONE HYDROCHLORIDE) [Concomitant]
  5. PERCOCET (OXYCOCET) [Concomitant]
  6. VELCADE (BORTEZOMIB) [Concomitant]
  7. BUTALBITAL-ASPIRIN (BUTALBITAL W/ASPIRIN, CAFFEINE) [Concomitant]
  8. ESTRADIOL [Concomitant]

REACTIONS (6)
  - Pyrexia [None]
  - Plasma cell myeloma recurrent [None]
  - Restless legs syndrome [None]
  - Hyperhidrosis [None]
  - Rhinorrhoea [None]
  - Pain in extremity [None]
